FAERS Safety Report 4820334-6 (Version None)
Quarter: 2005Q4

REPORT INFORMATION
  Report Type: 
  Country: None (occurrence: None)
  Receive Date: 20051102
  Receipt Date: 20051102
  Transmission Date: 20060501
  Serious: Yes (Hospitalization)
  Sender: FDA-Public Use
  Company Number: None

PATIENT
  Age: 65 Year
  Sex: Male
  Weight: 76.8 kg

DRUGS (1)
  1. TAXOTERE [Suspect]
     Indication: NEOPLASM MALIGNANT
     Dosage: 75 MG X 3 WEEK X 4 CYCLES
     Dates: start: 20050616, end: 20050804

REACTIONS (3)
  - HEADACHE [None]
  - POST PROCEDURAL NAUSEA [None]
  - POST PROCEDURAL VOMITING [None]
